FAERS Safety Report 8437203-5 (Version None)
Quarter: 2012Q2

REPORT INFORMATION
  Report Type: 
  Country: None (occurrence: None)
  Receive Date: 20120614
  Receipt Date: 20120307
  Transmission Date: 20120825
  Serious: No
  Sender: FDA-Public Use
  Company Number: US-AMGEN-USASP2011061542

PATIENT
  Age: 48 Year
  Sex: Female
  Weight: 70.295 kg

DRUGS (3)
  1. CENESTIN [Concomitant]
     Indication: MENOPAUSE
     Dosage: UNK UNK, QD
     Route: 048
     Dates: start: 20101014
  2. PROLIA [Suspect]
     Dosage: 60 MG, Q6MO
     Route: 058
     Dates: start: 20101014, end: 20111110
  3. PROLIA [Suspect]
     Indication: OSTEOPOROSIS POSTMENOPAUSAL
     Dosage: 60 MG, Q6MO
     Route: 058
     Dates: start: 20101014, end: 20111110

REACTIONS (5)
  - INFLUENZA LIKE ILLNESS [None]
  - ECZEMA [None]
  - BURNING SENSATION [None]
  - PAIN IN JAW [None]
  - PRURITUS [None]
